FAERS Safety Report 4664110-6 (Version None)
Quarter: 2005Q2

REPORT INFORMATION
  Report Type: 
  Country: None (occurrence: None)
  Receive Date: 20050516
  Receipt Date: 20050516
  Transmission Date: 20051028
  Serious: Yes (Other)
  Sender: FDA-Public Use
  Company Number: None

PATIENT
  Age: 85 Year
  Sex: Female
  Weight: 60.3284 kg

DRUGS (4)
  1. WARFARIN SODIUM [Suspect]
     Indication: ATRIAL FIBRILLATION
     Dosage: ONE PO DAILY
     Route: 048
     Dates: start: 20050107
  2. ALDOMET [Concomitant]
  3. BRETHINE [Concomitant]
  4. THEOPHYLLINE [Concomitant]

REACTIONS (2)
  - LOWER EXTREMITY MASS [None]
  - UPPER EXTREMITY MASS [None]
